FAERS Safety Report 11167982 (Version 2)
Quarter: 2015Q3

REPORT INFORMATION
  Report Type: Report from Study
  Country: US (occurrence: US)
  Receive Date: 20150605
  Receipt Date: 20150703
  Transmission Date: 20151125
  Serious: Yes (Other)
  Sender: FDA-Public Use
  Company Number: US-009507513-1506USA000391

PATIENT
  Age: 68 Year
  Sex: Male

DRUGS (2)
  1. LEDIPASVIR (+) SOFOSBUVIR [Suspect]
     Active Substance: LEDIPASVIR\SOFOSBUVIR
     Indication: CHRONIC HEPATITIS C
     Dosage: FIXED DOSE COMBINATION, QD
  2. REBETOL [Suspect]
     Active Substance: RIBAVIRIN
     Indication: CHRONIC HEPATITIS C
     Dosage: 1,000 MG DAILY IN PATIENTS WITH BODY WEIGHT OF {75 KG AND 1200 MG IN PATIENTS WITH BODY WEIGHT }75KG
     Route: 048

REACTIONS (3)
  - Non-cardiac chest pain [Unknown]
  - Cholecystitis infective [Unknown]
  - Anaemia [Unknown]
